FAERS Safety Report 21334028 (Version 4)
Quarter: 2022Q4

REPORT INFORMATION
  Report Type: Spontaneous
  Country: JP (occurrence: JP)
  Receive Date: 20220914
  Receipt Date: 20221118
  Transmission Date: 20230113
  Serious: Yes (Other)
  Sender: FDA-Public Use
  Company Number: JP-ELI_LILLY_AND_COMPANY-JP202209002734

PATIENT
  Age: 75 Year
  Sex: Female

DRUGS (3)
  1. CYRAMZA [Suspect]
     Active Substance: RAMUCIRUMAB
     Indication: Colon cancer
     Dosage: 480 MG, CYCLICAL
     Route: 042
     Dates: start: 20220301
  2. IRINOTECAN HYDROCHLORIDE [Concomitant]
     Active Substance: IRINOTECAN HYDROCHLORIDE
     Indication: Colon cancer
     Dosage: 150 MG
     Dates: start: 20220301
  3. FLUOROURACIL [Concomitant]
     Active Substance: FLUOROURACIL
     Indication: Colon cancer
     Dosage: 2400 MG/M2
     Dates: start: 20220301

REACTIONS (1)
  - Cubital tunnel syndrome [Recovered/Resolved]

NARRATIVE: CASE EVENT DATE: 20220902
